FAERS Safety Report 5134067-2 (Version None)
Quarter: 2006Q4

REPORT INFORMATION
  Report Type: 
  Country: None (occurrence: None)
  Receive Date: 20061019
  Receipt Date: 20061011
  Transmission Date: 20070319
  Serious: Yes (Life-Threatening)
  Sender: FDA-Public Use
  Company Number: GXKR2006GB06450

PATIENT
  Age: 19 Year
  Sex: Female

DRUGS (1)
  1. PROPRANOLOL [Suspect]
     Indication: MIGRAINE

REACTIONS (3)
  - DRUG INTOLERANCE [None]
  - PHAEOCHROMOCYTOMA [None]
  - TUMOUR HAEMORRHAGE [None]
